FAERS Safety Report 9500159 (Version 1)
Quarter: 2013Q1

REPORT INFORMATION
  Report Type: Spontaneous
  Country: US (occurrence: None)
  Receive Date: 20130129
  Receipt Date: 20130129
  Transmission Date: 20140127
  Serious: Yes (Hospitalization)
  Sender: FDA-Public Use
  Company Number: 1000037532

PATIENT
  Age: 87 Year
  Sex: Male
  Weight: 87 kg

DRUGS (4)
  1. BYSTOLIC [Suspect]
     Indication: HYPERTENSION
     Dosage: 10 MG (5 MG, 2 IN 1 D), ORAL
     Route: 048
     Dates: start: 20101015, end: 20120703
  2. CELECOXIB [Suspect]
     Indication: OSTEOARTHRITIS
     Dates: start: 20100513, end: 20120703
  3. CELECOXIB [Suspect]
     Indication: RHEUMATOID ARTHRITIS
     Dates: start: 20100513, end: 20120703
  4. NEXIUM (ESOMEPRAZOLE) (ESOMEPRAZOLE) [Concomitant]

REACTIONS (1)
  - Atrioventricular block second degree [None]
